FAERS Safety Report 7494588-4 (Version None)
Quarter: 2011Q2

REPORT INFORMATION
  Report Type: 
  Country: None (occurrence: None)
  Receive Date: 20110520
  Receipt Date: 20110516
  Transmission Date: 20111010
  Serious: Yes (Death)
  Sender: FDA-Public Use
  Company Number: PHEH2009US06625

PATIENT
  Sex: Male
  Weight: 108.84 kg

DRUGS (2)
  1. BLOOD AND RELATED PRODUCTS [Concomitant]
  2. EXJADE [Suspect]
     Indication: MYELODYSPLASTIC SYNDROME
     Dosage: 2000 MG, QD
     Route: 048
     Dates: start: 20090611

REACTIONS (1)
  - DEATH [None]
